FAERS Safety Report 21194832 (Version 1)
Quarter: 2022Q3

REPORT INFORMATION
  Report Type: Report from Study
  Country: DO (occurrence: DO)
  Receive Date: 20220810
  Receipt Date: 20220810
  Transmission Date: 20221027
  Serious: Yes (Other)
  Sender: FDA-Public Use
  Company Number: DO-NOVARTISPH-NVSC2022DO180167

PATIENT
  Age: 65 Year
  Sex: Female

DRUGS (1)
  1. EXFORGE HCT [Suspect]
     Active Substance: AMLODIPINE BESYLATE\HYDROCHLOROTHIAZIDE\VALSARTAN
     Indication: Cardiac disorder
     Dosage: UNK
     Route: 065

REACTIONS (1)
  - Dementia Alzheimer^s type [Not Recovered/Not Resolved]
